FAERS Safety Report 19837386 (Version 1)
Quarter: 2021Q3

REPORT INFORMATION
  Report Type: Spontaneous
  Country: CN (occurrence: CN)
  Receive Date: 20210914
  Receipt Date: 20210914
  Transmission Date: 20211014
  Serious: Yes (Other)
  Sender: FDA-Public Use
  Company Number: CN-BAXTER-2021BAX024392

PATIENT
  Age: 56 Year
  Sex: Female
  Weight: 66 kg

DRUGS (4)
  1. ENDOXAN [Suspect]
     Active Substance: CYCLOPHOSPHAMIDE
     Indication: BREAST CANCER
     Dosage: CYCLOPHOSPHAMIDE 900.00 MG + 0.9% SODIUM CHLORIDE INJECTION 50 ML
     Route: 041
     Dates: start: 20210205, end: 20210205
  2. 0.9% SODIUM CHLORIDE INJECTION [Suspect]
     Active Substance: SODIUM CHLORIDE
     Indication: MEDICATION DILUTION
     Dosage: CYCLOPHOSPHAMIDE 900.00 MG + 0.9% SODIUM CHLORIDE INJECTION 50 ML
     Route: 041
     Dates: start: 20210205, end: 20210205
  3. EPIRUBICIN HYDROCHLORIDE. [Suspect]
     Active Substance: EPIRUBICIN HYDROCHLORIDE
     Indication: BREAST CANCER
     Dosage: EPIRUBICIN INJECTION 60 MG + 0.9% SODIUM CHLORIDE INJECTION 100 ML
     Route: 041
     Dates: start: 20210205, end: 20210205
  4. 0.9% SODIUM CHLORIDE INJECTION [Suspect]
     Active Substance: SODIUM CHLORIDE
     Dosage: EPIRUBICIN INJECTION 60 MG + 0.9% SODIUM CHLORIDE INJECTION 100 ML
     Route: 041
     Dates: start: 20210205, end: 20210205

REACTIONS (3)
  - Leukopenia [Recovered/Resolved]
  - Asthenia [Recovered/Resolved]
  - Fatigue [Recovering/Resolving]

NARRATIVE: CASE EVENT DATE: 20210215
